FAERS Safety Report 8093171-X (Version None)
Quarter: 2012Q1

REPORT INFORMATION
  Report Type: 
  Country: None (occurrence: None)
  Receive Date: 20120128
  Receipt Date: 20111012
  Transmission Date: 20120608
  Serious: No
  Sender: FDA-Public Use
  Company Number: US-ABBOTT-11P-163-0847208-00

PATIENT
  Age: 44 Year
  Sex: Male

DRUGS (14)
  1. ASPIRIN [Concomitant]
     Indication: CARDIOVASCULAR EVENT PROPHYLAXIS
  2. TEMAZEPAM [Concomitant]
     Indication: INSOMNIA
     Dosage: EVERY NIGHT
  3. TRAMADOL HCL [Concomitant]
     Indication: PAIN
     Dosage: 1-2 THREE TIMES A DAY
  4. ASPIRIN [Concomitant]
  5. CLONAZEPAM [Concomitant]
     Indication: PRODUCT USED FOR UNKNOWN INDICATION
  6. MARIJUANA [Concomitant]
     Indication: PAIN
     Dosage: MEDICAL AS NEEDED
  7. HUMIRA [Suspect]
     Indication: PSORIATIC ARTHROPATHY
     Dates: start: 20100201
  8. MUSCLE RELAXERS [Concomitant]
     Indication: PRODUCT USED FOR UNKNOWN INDICATION
  9. VICODIN [Concomitant]
     Indication: PAIN
     Dosage: 7/150MG AS NEEDED
     Route: 048
  10. SOMA [Concomitant]
     Indication: MUSCLE SPASMS
     Route: 048
     Dates: start: 20000101
  11. MULTI-VITAMIN [Concomitant]
     Indication: SUPPLEMENTATION THERAPY
  12. SIMVASTATIN [Concomitant]
     Indication: BLOOD CHOLESTEROL
     Route: 048
  13. MOTRIN [Concomitant]
     Indication: PAIN
     Dosage: 1 TWICE DAILY OR UP TO FOUR TIMES DAILY AS NEEDED
  14. CPAP [Concomitant]
     Indication: SLEEP APNOEA SYNDROME
     Dosage: 10-14CMH20 PRESSURE EVERY NIGHT

REACTIONS (6)
  - DRUG EFFECT DECREASED [None]
  - PAIN [None]
  - FATIGUE [None]
  - DRUG INEFFECTIVE [None]
  - INCORRECT DRUG ADMINISTRATION DURATION [None]
  - PSORIASIS [None]
